FAERS Safety Report 6519363-6 (Version None)
Quarter: 2009Q4

REPORT INFORMATION
  Report Type: 
  Country: None (occurrence: None)
  Receive Date: 20091228
  Receipt Date: 20091221
  Transmission Date: 20100525
  Serious: Yes (Other)
  Sender: FDA-Public Use
  Company Number: JP-BAYER-200914198BYL

PATIENT
  Age: 73 Year
  Sex: Female
  Weight: 50 kg

DRUGS (4)
  1. NEXAVAR [Suspect]
     Indication: HEPATIC NEOPLASM MALIGNANT
     Dosage: TOTAL DAILY DOSE: 800 MG  UNIT DOSE: 200 MG
     Route: 048
     Dates: start: 20090930, end: 20091015
  2. TAKEPRON [Concomitant]
     Route: 048
     Dates: start: 20090201
  3. ASPIRIN [Concomitant]
     Dosage: UNIT DOSE: 100 MG
     Route: 048
     Dates: start: 20091002
  4. MAGNESIUM OXIDE [Concomitant]
     Route: 048
     Dates: start: 20090201

REACTIONS (1)
  - ERYTHEMA MULTIFORME [None]
